FAERS Safety Report 10164646 (Version 2)
Quarter: 2014Q2

REPORT INFORMATION
  Report Type: Spontaneous
  Country: US (occurrence: US)
  Receive Date: 20140510
  Receipt Date: 20140510
  Transmission Date: 20141212
  Serious: No
  Sender: FDA-Public Use
  Company Number: US-BRISTOL-MYERS SQUIBB COMPANY-20142378

PATIENT
  Age: 43 Year
  Sex: Male
  Weight: 103.85 kg

DRUGS (2)
  1. BYDUREON [Suspect]
     Indication: TYPE 2 DIABETES MELLITUS
     Route: 058
     Dates: start: 2014
  2. HUMIRA [Concomitant]

REACTIONS (2)
  - Neuralgia [Unknown]
  - Malaise [Unknown]
